FAERS Safety Report 5579152-6 (Version None)
Quarter: 2008Q1

REPORT INFORMATION
  Report Type: 
  Country: None (occurrence: None)
  Receive Date: 20080102
  Receipt Date: 20071221
  Transmission Date: 20080703
  Serious: Yes (Death, Hospitalization)
  Sender: FDA-Public Use
  Company Number: FI-ROCHE-538576

PATIENT
  Age: 76 Year
  Sex: Female

DRUGS (2)
  1. XELODA [Suspect]
     Dosage: DOSE REPORTED AS 4+4
     Route: 048
     Dates: start: 20071112, end: 20071122
  2. NORVASC [Concomitant]
     Indication: HYPERTENSION
     Dosage: DOSE REPORTED AS 5MGX1
     Route: 048

REACTIONS (5)
  - DIARRHOEA [None]
  - GENERAL PHYSICAL HEALTH DETERIORATION [None]
  - NEUTROPENIC SEPSIS [None]
  - ORAL DISORDER [None]
  - SKIN REACTION [None]
